FAERS Safety Report 15863141 (Version 1)
Quarter: 2018Q4

REPORT INFORMATION
  Report Type: Spontaneous
  Country: US (occurrence: US)
  Receive Date: 20181231
  Receipt Date: 20181231
  Transmission Date: 20190205
  Serious: Yes (Death, Life-Threatening, Hospitalization)
  Sender: FDA-Public Use
  Company Number: None

PATIENT
  Age: 69 Year
  Sex: Female
  Weight: 31.75 kg

DRUGS (1)
  1. MIRCERA [Suspect]
     Active Substance: METHOXY POLYETHYLENE GLYCOL-EPOETIN BETA
     Indication: NEPHROGENIC ANAEMIA
     Dosage: ?          OTHER FREQUENCY:EVERY 2 WEEKS ;?
     Route: 042
     Dates: start: 20180217, end: 20180414

REACTIONS (6)
  - Malaise [None]
  - Unresponsive to stimuli [None]
  - Dyspnoea [None]
  - Heart rate increased [None]
  - Nausea [None]
  - Blood pressure decreased [None]

NARRATIVE: CASE EVENT DATE: 20180414
